FAERS Safety Report 7029129-9 (Version None)
Quarter: 2010Q4

REPORT INFORMATION
  Report Type: 
  Country: None (occurrence: None)
  Receive Date: 20101005
  Receipt Date: 20100929
  Transmission Date: 20110411
  Serious: Yes (Hospitalization)
  Sender: FDA-Public Use
  Company Number: US-RB-013789-10

PATIENT
  Age: 24 Year
  Sex: Female

DRUGS (2)
  1. SUBUTEX [Suspect]
     Indication: DRUG DEPENDENCE
     Dosage: TAPERING FROM 16 MG TO 4 MG DAILY
     Route: 060
     Dates: start: 20100729
  2. ANTIBIOTIC [Concomitant]
     Indication: URINARY TRACT INFECTION
     Dosage: UNKNOWN DOSING DETAILS
     Route: 065
     Dates: start: 20100701

REACTIONS (4)
  - ANTEPARTUM HAEMORRHAGE [None]
  - DRUG EXPOSURE DURING PREGNANCY [None]
  - UTERINE CONTRACTIONS DURING PREGNANCY [None]
  - VOMITING [None]
